FAERS Safety Report 10570685 (Version 1)
Quarter: 2014Q4

REPORT INFORMATION
  Report Type: Spontaneous
  Country: US (occurrence: US)
  Receive Date: 20141107
  Receipt Date: 20141107
  Transmission Date: 20150529
  Serious: No
  Sender: FDA-Public Use
  Company Number: US-009507513-1410USA016027

PATIENT
  Sex: Female

DRUGS (1)
  1. COPPERTONE CLEARLYSHEER FOR SUNNY DAYS SPF-30 [Suspect]
     Active Substance: AVOBENZONE\HOMOSALATE\OCTINOXATE\OCTISALATE\OXYBENZONE
     Indication: PRODUCT USED FOR UNKNOWN INDICATION
     Dosage: UNK, UNKNOWN
     Route: 061

REACTIONS (4)
  - Application site rash [Unknown]
  - Application site papules [Unknown]
  - Application site pruritus [Unknown]
  - Application site erythema [Unknown]
